FAERS Safety Report 8103432-3 (Version None)
Quarter: 2012Q1

REPORT INFORMATION
  Report Type: 
  Country: None (occurrence: None)
  Receive Date: 20120201
  Receipt Date: 20120124
  Transmission Date: 20120608
  Serious: Yes (Hospitalization)
  Sender: FDA-Public Use
  Company Number: FR-PFIZER INC-2012024567

PATIENT
  Age: 77 Year
  Sex: Female

DRUGS (8)
  1. CORDARONE [Suspect]
     Indication: CARDIAC FAILURE
     Dosage: 200 MG, 2X/DAY
     Route: 048
     Dates: end: 20111123
  2. DIGOXIN [Suspect]
     Indication: ATRIAL FIBRILLATION
     Dosage: 0.125 MG, 1X/DAY
     Route: 048
     Dates: end: 20111123
  3. LEVOTHYROXINE SODIUM [Concomitant]
     Dosage: 50 MCG DAILY
  4. BISOPROLOL FUMARATE [Suspect]
     Indication: CARDIAC FAILURE
     Dosage: 1.25 MG, 1X/DAY
     Route: 048
     Dates: end: 20111123
  5. VALSARTAN [Suspect]
     Dosage: 160 MG, 1X/DAY
     Route: 048
  6. FOLIC ACID [Concomitant]
     Dosage: 5 MG DAILY
  7. PREVISCAN [Concomitant]
  8. LASIX [Suspect]
     Indication: HYPERTENSION
     Dosage: 40 MG, 1X/DAY
     Route: 048

REACTIONS (3)
  - BRADYCARDIA [None]
  - HYPOKALAEMIA [None]
  - ELECTROCARDIOGRAM QT PROLONGED [None]
